FAERS Safety Report 4861404-6 (Version None)
Quarter: 2005Q4

REPORT INFORMATION
  Report Type: 
  Country: None (occurrence: None)
  Receive Date: 20051129
  Receipt Date: 20050321
  Transmission Date: 20060501
  Serious: Yes (Disabling)
  Sender: FDA-Public Use
  Company Number: WAES 0503USA03693

PATIENT
  Age: 74 Year
  Sex: Female

DRUGS (4)
  1. FOSAMAX [Suspect]
     Indication: OSTEOPOROSIS
     Dosage: 70 MG/WKY/PO
     Route: 048
     Dates: start: 20040301
  2. MOBIC [Concomitant]
  3. PRAVACHOL [Concomitant]
  4. TRIAMTERENE [Concomitant]

REACTIONS (1)
  - PAIN IN EXTREMITY [None]
